FAERS Safety Report 23936810 (Version 1)
Quarter: 2024Q2

REPORT INFORMATION
  Report Type: Spontaneous
  Country: US (occurrence: None)
  Receive Date: 20240603
  Receipt Date: 20240603
  Transmission Date: 20240716
  Serious: Yes (Hospitalization)
  Sender: FDA-Public Use
  Company Number: None

PATIENT
  Sex: Female

DRUGS (2)
  1. OXBRYTA [Suspect]
     Active Substance: VOXELOTOR
     Indication: Thalassaemia sickle cell
     Dosage: FREQUENCY : DAILY;?
     Route: 048
  2. ENDARI [Concomitant]
     Active Substance: GLUTAMINE

REACTIONS (2)
  - Sickle cell anaemia with crisis [None]
  - Therapy interrupted [None]
